FAERS Safety Report 5276562-1 (Version None)
Quarter: 2007Q1

REPORT INFORMATION
  Report Type: 
  Country: None (occurrence: None)
  Receive Date: 20070327
  Receipt Date: 20070319
  Transmission Date: 20070707
  Serious: Yes (Hospitalization)
  Sender: FDA-Public Use
  Company Number: PHEH2007US03222

PATIENT
  Age: 70 Year
  Sex: Female

DRUGS (12)
  1. AREDIA [Suspect]
     Indication: OSTEOPOROSIS
     Dosage: QMONTH
     Dates: end: 20070301
  2. PREDNISONE [Concomitant]
  3. ATENOLOL [Concomitant]
  4. LISINOPRIL [Concomitant]
  5. NORVASC [Concomitant]
  6. ASPIRIN [Concomitant]
  7. MAGNESIUM OXIDE [Concomitant]
  8. LASIX [Concomitant]
  9. CATAPRES [Concomitant]
  10. PRILOSEC [Concomitant]
  11. OXYCONTIN [Concomitant]
  12. VICODIN [Concomitant]

REACTIONS (2)
  - BLOOD CREATININE INCREASED [None]
  - GLOMERULONEPHRITIS [None]
